FAERS Safety Report 8855049 (Version 1)
Quarter: 2012Q4

REPORT INFORMATION
  Report Type: 
  Country: GB (occurrence: GB)
  Receive Date: 20121023
  Receipt Date: 20121023
  Transmission Date: 20130627
  Serious: Yes (Other)
  Sender: FDA-Public Use
  Company Number: GB-TEVA-308621ISR

PATIENT
  Sex: Male

DRUGS (2)
  1. METHOTREXATE [Suspect]
     Indication: PRODUCT USED FOR UNKNOWN INDICATION
     Dosage: stopped 3 weeks ago
     Dates: end: 201110
  2. HUMIRA 40 MG/ 0.8 ML PRE-FILLED SYRINGE [Suspect]
     Indication: PSORIASIS
     Dosage: stopped 3 weeks ago
     Dates: end: 201110

REACTIONS (2)
  - Renal cell carcinoma [Unknown]
  - Off label use [Unknown]
